FAERS Safety Report 21016439 (Version 1)
Quarter: 2022Q2

REPORT INFORMATION
  Report Type: Spontaneous
  Country: BG (occurrence: BG)
  Receive Date: 20220628
  Receipt Date: 20220628
  Transmission Date: 20220721
  Serious: Yes (Other)
  Sender: FDA-Public Use
  Company Number: BG-ASTELLAS-2022US023156

PATIENT
  Age: 48 Year
  Sex: Male

DRUGS (1)
  1. GILTERITINIB [Suspect]
     Active Substance: GILTERITINIB
     Indication: Acute myeloid leukaemia
     Dosage: UNK UNK, UNKNOWN FREQ. (ONE COURSE MONOTHERAPY WITH GILTERITINIB WAS PERFORMED)
     Route: 065

REACTIONS (4)
  - Neutropenic sepsis [Unknown]
  - Acute graft versus host disease [Recovered/Resolved]
  - Cytomegalovirus infection [Recovered/Resolved]
  - Platelet dysfunction [Unknown]
